FAERS Safety Report 13500179 (Version 1)
Quarter: 2017Q2

REPORT INFORMATION
  Report Type: Spontaneous
  Country: US (occurrence: US)
  Receive Date: 20170501
  Receipt Date: 20170501
  Transmission Date: 20170830
  Serious: No
  Sender: FDA-Public Use
  Company Number: US-SHIRE-US201709626

PATIENT
  Age: 52 Year
  Sex: Female

DRUGS (2)
  1. LIALDA [Suspect]
     Active Substance: MESALAMINE
     Indication: COLITIS ULCERATIVE
  2. LIALDA [Suspect]
     Active Substance: MESALAMINE
     Indication: POUCHITIS
     Dosage: 1.2 G, 1X/DAY:QD
     Route: 048
     Dates: start: 201701

REACTIONS (3)
  - Rash pruritic [Unknown]
  - Rectal spasm [Unknown]
  - Dysuria [Unknown]

NARRATIVE: CASE EVENT DATE: 201704
